FAERS Safety Report 5066061-4 (Version None)
Quarter: 2006Q3

REPORT INFORMATION
  Report Type: 
  Country: None (occurrence: None)
  Receive Date: 20060731
  Receipt Date: 20060731
  Transmission Date: 20061208
  Serious: Yes (Life-Threatening, Hospitalization, Disabling)
  Sender: FDA-Public Use
  Company Number: None

PATIENT
  Age: 65 Year
  Sex: Male
  Weight: 53.978 kg

DRUGS (1)
  1. ANGIOMAX [Suspect]
     Indication: ANTICOAGULANT THERAPY
     Dosage: 36. MG ONCE IV DRIP
     Route: 041
     Dates: start: 20060727, end: 20060727

REACTIONS (2)
  - ANAPHYLACTIC REACTION [None]
  - PROCEDURAL COMPLICATION [None]
